FAERS Safety Report 18269829 (Version 1)
Quarter: 2020Q3

REPORT INFORMATION
  Report Type: Spontaneous
  Country: US (occurrence: US)
  Receive Date: 20200915
  Receipt Date: 20200915
  Transmission Date: 20201103
  Serious: Yes (Other)
  Sender: FDA-Public Use
  Company Number: US-ANIPHARMA-2020-US-016986

PATIENT
  Sex: Male

DRUGS (1)
  1. EZETIMIBE AND SIMVASTATIN (LITERATURE SOURCE) [Suspect]
     Active Substance: EZETIMIBE\SIMVASTATIN
     Indication: PRODUCT USED FOR UNKNOWN INDICATION
     Dosage: 10 MG AND 20 MG

REACTIONS (2)
  - Tendonitis [Unknown]
  - Tendon rupture [Unknown]
